FAERS Safety Report 26193140 (Version 2)
Quarter: 2025Q4

REPORT INFORMATION
  Report Type: Spontaneous
  Country: TW (occurrence: TW)
  Receive Date: 20251223
  Receipt Date: 20251226
  Transmission Date: 20260117
  Serious: Yes (Other)
  Sender: NOVARTIS
  Company Number: TW-002147023-NVSC2025TW194975

PATIENT
  Sex: Male

DRUGS (9)
  1. DIOVAN [Suspect]
     Active Substance: VALSARTAN
     Indication: Product used for unknown indication
     Dosage: 0.5 DOSAGE FORM, QD (0.5 TAB PO QDPC)
     Route: 048
  2. ATRASENTAN [Suspect]
     Active Substance: ATRASENTAN
     Indication: IgA nephropathy
     Dosage: 0.75 MG, QD (ONCE A DAY)
     Route: 065
  3. DILTELAN [Concomitant]
     Indication: Product used for unknown indication
     Dosage: 1 DOSAGE FORM, QD (SR 120 MG/CAP, 1 CAP PO QD)
     Route: 048
  4. Forflow [Concomitant]
     Indication: Product used for unknown indication
     Dosage: 1 DOSAGE FORM, QD (SR 400 MG/TAB, 1 TAB PO QDPC)
     Route: 048
  5. LIPITOR [Concomitant]
     Active Substance: ATORVASTATIN CALCIUM
     Indication: Product used for unknown indication
     Dosage: 3 DOSAGE FORM, QD (20 MG/TAB, 3 TAB PO QN)
     Route: 048
  6. FENOFIBRATE [Concomitant]
     Active Substance: FENOFIBRATE
     Indication: Product used for unknown indication
     Dosage: 1 DOSAGE FORM, QD (LIPANTHYL SUPRA FC 160 MG/TAB) 1 TAB PO QDPC)
     Route: 048
  7. ACTOS [Concomitant]
     Active Substance: PIOGLITAZONE HYDROCHLORIDE
     Indication: Product used for unknown indication
     Dosage: 1 DOSAGE FORM, QD
     Route: 048
  8. QTERN [Concomitant]
     Active Substance: DAPAGLIFLOZIN\SAXAGLIPTIN HYDROCHLORIDE
     Indication: Product used for unknown indication
     Dosage: 1 DOSAGE FORM, QD (FC /TAB, 1 TAB PO QAM)
     Route: 048
  9. METFORMIN HYDROCHLORIDE [Concomitant]
     Active Substance: METFORMIN HYDROCHLORIDE
     Indication: Product used for unknown indication
     Dosage: 1 DOSAGE FORM, BID (1 TAB PO BIDPC)
     Route: 048

REACTIONS (3)
  - IgA nephropathy [Unknown]
  - Urine protein/creatinine ratio decreased [Unknown]
  - Glomerular filtration rate decreased [Unknown]

NARRATIVE: CASE EVENT DATE: 20250505
